FAERS Safety Report 9457591 (Version 1)
Quarter: 2013Q3

REPORT INFORMATION
  Report Type: Spontaneous
  Country: ZA (occurrence: None)
  Receive Date: 20130812
  Receipt Date: 20130812
  Transmission Date: 20140515
  Serious: Yes (Hospitalization)
  Sender: FDA-Public Use
  Company Number: AG-2012-1442

PATIENT
  Age: 79 Year
  Sex: Female
  Weight: 52 kg

DRUGS (4)
  1. CHLORAMBUCIL [Suspect]
     Indication: CHRONIC LYMPHOCYTIC LEUKAEMIA
     Dosage: DAY 1 AND DAY 15 ONLY
     Dates: start: 20120821, end: 20120914
  2. VALACICLOVIR (VALACICLOVIR) [Concomitant]
  3. ALLOPURINOL [Concomitant]
  4. HYDROXYUREA (HYDROXYCARBAMIDE) [Concomitant]

REACTIONS (8)
  - Gastroenteritis [None]
  - Deep vein thrombosis [None]
  - Nausea [None]
  - Neutropenia [None]
  - Blood sodium decreased [None]
  - Urinary tract infection [None]
  - Escherichia test positive [None]
  - Proteus test positive [None]
